FAERS Safety Report 10509391 (Version 3)
Quarter: 2015Q1

REPORT INFORMATION
  Report Type: Report from Study
  Country: US (occurrence: US)
  Receive Date: 20141009
  Receipt Date: 20150226
  Transmission Date: 20150720
  Serious: Yes (Hospitalization, Other)
  Sender: FDA-Public Use
  Company Number: US-EXELIXIS-CABO-14004812

PATIENT
  Sex: Male

DRUGS (3)
  1. CABOZANTINIB [Suspect]
     Active Substance: CABOZANTINIB
     Indication: CHRONIC LYMPHOCYTIC LEUKAEMIA
     Dosage: 60 MG, QD
     Route: 048
     Dates: start: 20140815, end: 20150209
  2. NEXIUM [Concomitant]
     Active Substance: ESOMEPRAZOLE MAGNESIUM
  3. IDELALISIB [Concomitant]
     Active Substance: IDELALISIB

REACTIONS (9)
  - Wound infection staphylococcal [Unknown]
  - Pain [Unknown]
  - Abdominal discomfort [Unknown]
  - Hypertension [Unknown]
  - Pyrexia [Unknown]
  - Postoperative wound infection [None]
  - Asthenia [Unknown]
  - Off label use [Unknown]
  - Pallor [Unknown]

NARRATIVE: CASE EVENT DATE: 2014
